FAERS Safety Report 8409191-9 (Version None)
Quarter: 2012Q2

REPORT INFORMATION
  Report Type: 
  Country: None (occurrence: None)
  Receive Date: 20120604
  Receipt Date: 20120529
  Transmission Date: 20120825
  Serious: Yes (Other)
  Sender: FDA-Public Use
  Company Number: RU-ROCHE-1072944

PATIENT
  Sex: Female

DRUGS (4)
  1. PEGASYS [Suspect]
     Route: 058
  2. RIBAVIRIN [Suspect]
     Indication: HEPATITIS C
     Route: 048
     Dates: start: 20120210
  3. PEGASYS [Suspect]
     Indication: HEPATITIS C
     Route: 058
     Dates: start: 20120210
  4. RIBAVIRIN [Suspect]
     Route: 048

REACTIONS (2)
  - BLOOD DISORDER [None]
  - NASOPHARYNGITIS [None]
